FAERS Safety Report 9176253 (Version 2)
Quarter: 2013Q2

REPORT INFORMATION
  Report Type: Spontaneous
  Country: US (occurrence: US)
  Receive Date: 20130321
  Receipt Date: 20130502
  Transmission Date: 20140414
  Serious: Yes (Other)
  Sender: FDA-Public Use
  Company Number: US-BIOGENIDEC-2013BI024925

PATIENT
  Age: 55 Year
  Sex: Female
  Weight: 55 kg

DRUGS (5)
  1. AVONEX [Suspect]
     Indication: MULTIPLE SCLEROSIS
     Route: 030
     Dates: start: 20110701
  2. MULTIVITAMINS [Concomitant]
     Route: 048
  3. MINOCYCLINE HYDROCHLORIDE [Concomitant]
  4. IBUPROFEN [Concomitant]
     Route: 048
  5. SYNTHROID [Concomitant]
     Route: 048

REACTIONS (6)
  - Altered state of consciousness [Recovered/Resolved]
  - Muscle spasms [Recovered/Resolved]
  - Adverse drug reaction [Recovered/Resolved]
  - Convulsion [Not Recovered/Not Resolved]
  - Tremor [Not Recovered/Not Resolved]
  - Chills [Not Recovered/Not Resolved]
